FAERS Safety Report 9977479 (Version 1)
Quarter: 2014Q1

REPORT INFORMATION
  Report Type: Report from Study
  Country: US (occurrence: US)
  Receive Date: 20140306
  Receipt Date: 20140306
  Transmission Date: 20141002
  Serious: No
  Sender: FDA-Public Use
  Company Number: US-ABBVIE-13P-163-1168110-00

PATIENT
  Age: 28 Year
  Sex: Female

DRUGS (4)
  1. HUMIRA [Suspect]
     Indication: PSORIASIS
     Dates: start: 20131017, end: 20131017
  2. HUMIRA [Suspect]
     Dates: start: 20131024, end: 20131024
  3. HUMIRA [Suspect]
     Dates: start: 20131107
  4. SYNTHROID [Concomitant]
     Indication: THYROID DISORDER

REACTIONS (1)
  - Injection site bruising [Recovered/Resolved]
